FAERS Safety Report 9850978 (Version 1)
Quarter: 2014Q1

REPORT INFORMATION
  Report Type: Spontaneous
  Country: US (occurrence: US)
  Receive Date: 20140128
  Receipt Date: 20140128
  Transmission Date: 20141002
  Serious: No
  Sender: FDA-Public Use
  Company Number: US-009507513-1401USA012340

PATIENT
  Sex: Female

DRUGS (1)
  1. DULERA [Suspect]
     Dosage: TWO PUFFS TWICE DAILY
     Route: 055

REACTIONS (3)
  - Dyspnoea [Unknown]
  - Product quality issue [Unknown]
  - Drug dose omission [Unknown]
